FAERS Safety Report 13414215 (Version 1)
Quarter: 2017Q2

REPORT INFORMATION
  Report Type: Spontaneous
  Country: US (occurrence: US)
  Receive Date: 20170407
  Receipt Date: 20170407
  Transmission Date: 20170830
  Serious: Yes (Other)
  Sender: FDA-Public Use
  Company Number: US-PFIZER INC-2017151683

PATIENT
  Age: 66 Year
  Sex: Female
  Weight: 53.52 kg

DRUGS (2)
  1. XARELTO [Concomitant]
     Active Substance: RIVAROXABAN
     Dosage: UNK
  2. XALKORI [Suspect]
     Active Substance: CRIZOTINIB
     Dosage: UNK

REACTIONS (3)
  - Urinary tract infection [Unknown]
  - Escherichia infection [Unknown]
  - Gastroenteritis viral [Unknown]
